FAERS Safety Report 4886102-4 (Version None)
Quarter: 2006Q1

REPORT INFORMATION
  Report Type: 
  Country: None (occurrence: None)
  Receive Date: 20060118
  Receipt Date: 20060118
  Transmission Date: 20060701
  Serious: Yes (Life-Threatening)
  Sender: FDA-Public Use
  Company Number: None

PATIENT
  Sex: Female
  Weight: 55.3388 kg

DRUGS (14)
  1. REMICADE [Suspect]
     Indication: RHEUMATOID ARTHRITIS
     Dosage: 5MG/KG IV Q4 WEEKS (ALSO 7MG/KG)
     Route: 042
     Dates: start: 20020101
  2. METHOTREXATE [Concomitant]
  3. HYDROCHLOROTHIAZIDE [Concomitant]
  4. FOLIC ACID [Concomitant]
  5. THYROID TAB [Concomitant]
  6. WARFARIN [Concomitant]
  7. ATENOLOL [Concomitant]
  8. CALCIUM GLUCONATE [Concomitant]
  9. MAGNESIUM [Concomitant]
  10. VIT D [Concomitant]
  11. VIT C [Concomitant]
  12. ZINC [Concomitant]
  13. VITAMIN B COMPLEX CAP [Concomitant]
  14. LEUCOVORIN [Concomitant]

REACTIONS (1)
  - BREAST CANCER [None]
